FAERS Safety Report 8797653 (Version 2)
Quarter: 2013Q1

REPORT INFORMATION
  Report Type: Spontaneous
  Country: FR (occurrence: FR)
  Receive Date: 20120920
  Receipt Date: 20130115
  Transmission Date: 20140127
  Serious: Yes (Hospitalization)
  Sender: FDA-Public Use
  Company Number: FR-009507513-1112FRA00024

PATIENT
  Age: 10 Year
  Sex: Female

DRUGS (5)
  1. SINGULAIR [Suspect]
     Indication: ASTHMA
     Dosage: 5 MG, QD
     Route: 048
     Dates: start: 200907, end: 201111
  2. SERETIDE [Suspect]
     Indication: ASTHMA
     Route: 055
     Dates: start: 2008, end: 201111
  3. AERIUS [Suspect]
     Indication: RHINITIS ALLERGIC
     Route: 048
     Dates: start: 2008, end: 201111
  4. FLUTICASONE PROPIONATE (+) SALMETEROL XINAFOATE [Suspect]
     Route: 055
  5. DESLORATADINE [Suspect]
     Route: 048

REACTIONS (4)
  - Conduction disorder [Recovered/Resolved]
  - Chest pain [Recovered/Resolved]
  - Vomiting [Recovered/Resolved]
  - Tachycardia [Unknown]
